FAERS Safety Report 13532200 (Version 2)
Quarter: 2017Q2

REPORT INFORMATION
  Report Type: Spontaneous
  Country: US (occurrence: US)
  Receive Date: 20170510
  Receipt Date: 20170530
  Transmission Date: 20170830
  Serious: No
  Sender: FDA-Public Use
  Company Number: US-TAIHO ONCOLOGY INC-EU-2017-00731

PATIENT
  Age: 62 Year
  Sex: Male
  Weight: 117.13 kg

DRUGS (15)
  1. LONSURF [Suspect]
     Active Substance: TIPIRACIL HYDROCHLORIDE\TRIFLURIDINE
     Indication: COLON CANCER
     Route: 048
     Dates: start: 20160809, end: 201704
  2. COLCHICINE. [Concomitant]
     Active Substance: COLCHICINE
     Dosage: PRN
  3. TESTOSTERONE. [Concomitant]
     Active Substance: TESTOSTERONE
  4. AMLODIPINE [Concomitant]
     Active Substance: AMLODIPINE BESYLATE
  5. MSIR [Concomitant]
     Active Substance: MORPHINE SULFATE
     Dosage: PRN
  6. OMEPRAZOLE. [Concomitant]
     Active Substance: OMEPRAZOLE
  7. ALLOPURINOL. [Concomitant]
     Active Substance: ALLOPURINOL
  8. DUKE^S MAGIC MOUTHWASH [Concomitant]
     Dosage: SWISH AND SPIT
  9. PHENERGAN [Concomitant]
     Active Substance: PROMETHAZINE HYDROCHLORIDE
     Dosage: PRN
  10. XARELTO [Concomitant]
     Active Substance: RIVAROXABAN
  11. SALBUTAMOL [Concomitant]
     Active Substance: ALBUTEROL
     Dosage: PRN
  12. ASA [Concomitant]
     Active Substance: ASPIRIN
  13. LOMOTIL [Concomitant]
     Active Substance: ATROPINE SULFATE\DIPHENOXYLATE HYDROCHLORIDE
     Dosage: 2.5-0.025 MG PRN
  14. METFORMIN [Concomitant]
     Active Substance: METFORMIN HYDROCHLORIDE
     Dosage: 1 1/2 TABS
     Route: 048
  15. ZOFRAN [Concomitant]
     Active Substance: ONDANSETRON HYDROCHLORIDE
     Dosage: PRN

REACTIONS (3)
  - White blood cell count decreased [Not Recovered/Not Resolved]
  - Disease progression [Not Recovered/Not Resolved]
  - Neutrophil count decreased [Not Recovered/Not Resolved]

NARRATIVE: CASE EVENT DATE: 20170328
